FAERS Safety Report 7442947-8 (Version None)
Quarter: 2011Q2

REPORT INFORMATION
  Report Type: 
  Country: None (occurrence: None)
  Receive Date: 20110425
  Receipt Date: 20110425
  Transmission Date: 20111010
  Serious: Yes (Death)
  Sender: FDA-Public Use
  Company Number: None

PATIENT
  Age: 73 Year
  Sex: Female

DRUGS (13)
  1. REVLIMID [Suspect]
     Indication: MULTIPLE MYELOMA
     Dosage: REVLIMID 15 MG EVERY OTHER DAY ORALLY
     Route: 048
     Dates: start: 20100601, end: 20100801
  2. SCOPOLAMINE [Concomitant]
  3. PREDNISONE [Concomitant]
  4. APAP TAB [Concomitant]
  5. SENNA [Concomitant]
  6. DOCUSATE [Concomitant]
  7. PROMETHAZINE [Concomitant]
  8. BISACODYL [Concomitant]
  9. BACLOFEN [Concomitant]
  10. OMEPRAZOLE [Concomitant]
  11. BUPROPION [Concomitant]
  12. ALBUTEROL [Concomitant]
  13. DEXAMETHASONE [Concomitant]

REACTIONS (2)
  - PNEUMONIA [None]
  - PNEUMOCYSTIS TEST POSITIVE [None]
